FAERS Safety Report 10877088 (Version 1)
Quarter: 2015Q1

REPORT INFORMATION
  Report Type: Spontaneous
  Country: IT (occurrence: IT)
  Receive Date: 20150302
  Receipt Date: 20150302
  Transmission Date: 20150721
  Serious: Yes (Other)
  Sender: FDA-Public Use
  Company Number: IT-RANBAXY-2015R1-93581

PATIENT
  Age: 7 Year

DRUGS (3)
  1. VANCOMYCIN [Suspect]
     Active Substance: VANCOMYCIN
     Indication: OSTEOMYELITIS
     Dosage: UNK
     Route: 065
  2. CEFTRIAXONE. [Suspect]
     Active Substance: CEFTRIAXONE
     Indication: OSTEOMYELITIS
     Dosage: UNK
     Route: 065
  3. CLINDAMYCIN [Suspect]
     Active Substance: CLINDAMYCIN\CLINDAMYCIN PHOSPHATE
     Indication: OSTEOMYELITIS
     Dosage: UNK
     Route: 065

REACTIONS (4)
  - Rash pustular [Recovered/Resolved]
  - Sepsis [Recovered/Resolved]
  - Staphylococcal infection [Recovered/Resolved]
  - Condition aggravated [Recovered/Resolved]
